FAERS Safety Report 8174746-6 (Version None)
Quarter: 2012Q1

REPORT INFORMATION
  Report Type: 
  Country: None (occurrence: None)
  Receive Date: 20120229
  Receipt Date: 20120220
  Transmission Date: 20120608
  Serious: Yes (Other)
  Sender: FDA-Public Use
  Company Number: CL-GLAXOSMITHKLINE-B0784553A

PATIENT
  Age: 30 Year
  Sex: Male

DRUGS (2)
  1. ARIPIPRAZOLE [Suspect]
     Indication: AUTISM SPECTRUM DISORDER
     Route: 048
  2. PAROXETINE [Suspect]
     Indication: DEPRESSIVE SYMPTOM
     Route: 048

REACTIONS (2)
  - DRUG INTERACTION [None]
  - PARKINSONISM [None]
